FAERS Safety Report 8391349-9 (Version None)
Quarter: 2012Q2

REPORT INFORMATION
  Report Type: 
  Country: None (occurrence: None)
  Receive Date: 20120529
  Receipt Date: 20120518
  Transmission Date: 20120825
  Serious: Yes (Other)
  Sender: FDA-Public Use
  Company Number: BR-JNJFOC-20120407873

PATIENT
  Age: 16 Year
  Sex: Male
  Weight: 90 kg

DRUGS (10)
  1. INVEGA [Suspect]
     Route: 048
     Dates: start: 20120101, end: 20120101
  2. INVEGA [Suspect]
     Dosage: 2 TABLETS OF 3 MG AT 9 AM
     Route: 048
     Dates: start: 20120101
  3. AKINETON [Concomitant]
     Route: 065
  4. INVEGA [Suspect]
     Indication: SCHIZOPHRENIA
     Route: 048
     Dates: start: 20120512, end: 20120516
  5. EQUILID [Concomitant]
     Dosage: 9AM, 3 PM, 9PM
     Route: 065
  6. AKINETON [Concomitant]
     Dosage: 9AM, 3PM, 9PM
     Route: 065
  7. INVEGA SUSTENNA [Suspect]
     Indication: SCHIZOPHRENIA
     Route: 030
     Dates: start: 20120410
  8. NEULEPTIL [Concomitant]
     Indication: SCHIZOPHRENIA
     Route: 065
  9. NEULEPTIL [Concomitant]
     Route: 065
  10. CLONAZEPAM [Concomitant]
     Indication: SCHIZOPHRENIA
     Dosage: 8 DROPS AT 9AM AND 15 DROPS AT 9 PM
     Route: 065
     Dates: start: 20120101

REACTIONS (6)
  - AGITATION [None]
  - COGNITIVE DISORDER [None]
  - SEDATION [None]
  - HYPERVIGILANCE [None]
  - REPETITIVE SPEECH [None]
  - PSYCHOTIC DISORDER [None]
